FAERS Safety Report 5322378-7 (Version None)
Quarter: 2007Q2

REPORT INFORMATION
  Report Type: 
  Country: None (occurrence: None)
  Receive Date: 20070511
  Receipt Date: 20070502
  Transmission Date: 20071010
  Serious: Yes (Disabling)
  Sender: FDA-Public Use
  Company Number: B0469581A

PATIENT
  Age: 62 Year
  Sex: Male
  Weight: 108 kg

DRUGS (6)
  1. NICORETTE [Suspect]
     Dosage: 10MG UNKNOWN
     Route: 055
     Dates: start: 20070405, end: 20070405
  2. ASPIRIN [Concomitant]
     Dosage: 150MG UNKNOWN
     Route: 048
     Dates: start: 19971202
  3. PERINDOPRIL [Concomitant]
     Dosage: 2MG PER DAY
     Route: 048
     Dates: start: 20060831
  4. ROSUVASTATIN [Concomitant]
     Dosage: 10MG UNKNOWN
     Route: 048
     Dates: start: 20041102
  5. SALBUTAMOL [Concomitant]
     Dosage: 200MCG AS REQUIRED
     Route: 055
     Dates: start: 20011203
  6. TILDIEM LA [Concomitant]
     Dosage: 200MG UNKNOWN
     Route: 048
     Dates: start: 20030508

REACTIONS (4)
  - BRONCHOSPASM [None]
  - DYSPNOEA [None]
  - MALAISE [None]
  - THROAT TIGHTNESS [None]
